FAERS Safety Report 8582282-8 (Version None)
Quarter: 2012Q3

REPORT INFORMATION
  Report Type: 
  Country: None (occurrence: None)
  Receive Date: 20120809
  Receipt Date: 20120805
  Transmission Date: 20120928
  Serious: Yes (Hospitalization)
  Sender: FDA-Public Use
  Company Number: US-ROCHE-1072369

PATIENT
  Sex: Female

DRUGS (10)
  1. ALBUTEROL [Concomitant]
  2. PEGASYS [Suspect]
     Indication: HEPATITIS C
  3. TELAPREVIR [Suspect]
     Indication: HEPATITIS C
  4. RIBAVIRIN [Suspect]
     Dates: start: 20120802
  5. FLUTICASONE PROPIONATE [Concomitant]
  6. TELAPREVIR [Suspect]
     Dates: start: 20120802
  7. RIBAVIRIN [Suspect]
     Indication: HEPATITIS C
  8. NEBULIZER (UNKNOWN DRUG) [Concomitant]
  9. PEGASYS [Suspect]
     Dates: start: 20120802
  10. AZOR (UNITED STATES) [Concomitant]

REACTIONS (7)
  - BLOOD PRESSURE DECREASED [None]
  - ASTHMA [None]
  - FEELING OF BODY TEMPERATURE CHANGE [None]
  - DRUG DOSE OMISSION [None]
  - ASTHENIA [None]
  - SYNCOPE [None]
  - DIZZINESS [None]
